FAERS Safety Report 8919800 (Version 2)
Quarter: 2012Q4

REPORT INFORMATION
  Report Type: 
  Country: US (occurrence: US)
  Receive Date: 20121121
  Receipt Date: 20121219
  Transmission Date: 20130627
  Serious: No
  Sender: FDA-Public Use
  Company Number: US-BAYER-2012-118901

PATIENT
  Sex: Female

DRUGS (3)
  1. MIRENA [Suspect]
     Indication: NEOPLASM PROPHYLAXIS
     Dosage: 20 mcg/24hr, CONT
     Route: 015
     Dates: start: 2010, end: 2011
  2. MIRENA [Suspect]
     Indication: NEOPLASM PROPHYLAXIS
     Dosage: 20 mcg/24hr, CONT
     Route: 015
     Dates: start: 2011
  3. MIRENA [Suspect]
     Indication: NEOPLASM PROPHYLAXIS

REACTIONS (1)
  - Off label use [None]
